FAERS Safety Report 21160763 (Version 4)
Quarter: 2022Q4

REPORT INFORMATION
  Report Type: Spontaneous
  Country: DE (occurrence: DE)
  Receive Date: 20220802
  Receipt Date: 20221221
  Transmission Date: 20230112
  Serious: Yes (Other)
  Sender: FDA-Public Use
  Company Number: DE-TAKEDA-2022TUS052134

PATIENT
  Age: 30 Year
  Sex: Male

DRUGS (10)
  1. ENTYVIO [Suspect]
     Active Substance: VEDOLIZUMAB
     Indication: Colitis ulcerative
     Dosage: UNK
     Route: 065
     Dates: start: 202206
  2. ENTYVIO [Suspect]
     Active Substance: VEDOLIZUMAB
     Indication: Colitis ulcerative
     Dosage: UNK
     Route: 065
     Dates: start: 202207
  3. CORTISONE [Suspect]
     Active Substance: CORTISONE
     Indication: Product used for unknown indication
     Dosage: 40 MILLIGRAM
     Route: 065
     Dates: start: 202206
  4. AZATHIOPRINE [Suspect]
     Active Substance: AZATHIOPRINE
     Indication: Colitis ulcerative
     Dosage: UNK
     Route: 065
     Dates: start: 2012
  5. PREDNISOLONE [Concomitant]
     Active Substance: PREDNISOLONE
     Dosage: 40 MILLIGRAM
  6. BUDESONIDE [Concomitant]
     Active Substance: BUDESONIDE
     Dosage: UNK UNK, QOD
  7. Salofalk [Concomitant]
     Dosage: UNK UNK, QOD
  8. MESALAMINE [Concomitant]
     Active Substance: MESALAMINE
     Dosage: 4.5 GRAM
  9. LOPERAMIDE [Concomitant]
     Active Substance: LOPERAMIDE
     Dosage: 40 MILLIGRAM
  10. PENTASA [Concomitant]
     Active Substance: MESALAMINE
     Dosage: 1.5 MILLIGRAM, BID

REACTIONS (5)
  - Colitis ulcerative [Unknown]
  - Steroid dependence [Unknown]
  - Herpes zoster [Unknown]
  - Pain in extremity [Unknown]
  - Drug ineffective [Unknown]
